FAERS Safety Report 4655790-X (Version None)
Quarter: 2005Q2

REPORT INFORMATION
  Report Type: 
  Country: None (occurrence: None)
  Receive Date: 20050507
  Receipt Date: 20050418
  Transmission Date: 20051028
  Serious: Yes (Hospitalization)
  Sender: FDA-Public Use
  Company Number: BE-MERCK-0504BEL00089

PATIENT
  Age: 71 Year
  Sex: Female

DRUGS (3)
  1. CANCIDAS [Suspect]
     Indication: OESOPHAGEAL CANDIDIASIS
     Route: 042
     Dates: start: 20050407, end: 20050416
  2. FLUCONAZOLE [Concomitant]
     Indication: OESOPHAGEAL CANDIDIASIS
     Route: 041
     Dates: start: 20050401, end: 20050401
  3. ITRACONAZOLE [Concomitant]
     Indication: CANDIDIASIS
     Route: 048
     Dates: start: 20050402, end: 20050408

REACTIONS (1)
  - ATRIAL FLUTTER [None]
